FAERS Safety Report 10243159 (Version 1)
Quarter: 2014Q2

REPORT INFORMATION
  Report Type: Spontaneous
  Country: US (occurrence: None)
  Receive Date: 20140616
  Receipt Date: 20140616
  Transmission Date: 20141212
  Serious: Yes (Hospitalization)
  Sender: FDA-Public Use
  Company Number: None

PATIENT
  Age: 90 Year
  Sex: Male

DRUGS (1)
  1. WARFARIN 7.5 MG JANTOVEN [Suspect]
     Indication: ATRIAL FIBRILLATION
     Route: 048

REACTIONS (8)
  - Asthenia [None]
  - Dysphagia [None]
  - Anaemia [None]
  - International normalised ratio increased [None]
  - Gastrointestinal haemorrhage [None]
  - Duodenal ulcer [None]
  - Blood urea increased [None]
  - Blood creatinine increased [None]
